FAERS Safety Report 4625913-7 (Version None)
Quarter: 2005Q1

REPORT INFORMATION
  Report Type: 
  Country: None (occurrence: None)
  Receive Date: 20050330
  Receipt Date: 20050324
  Transmission Date: 20050727
  Serious: Yes (Other)
  Sender: FDA-Public Use
  Company Number: 2004113576

PATIENT
  Age: 68 Year
  Sex: Female
  Weight: 73.4827 kg

DRUGS (11)
  1. LIPITOR [Suspect]
     Indication: ILL-DEFINED DISORDER
     Dosage: 10 MG (10 MG, 1 IN 1 D), ORAL
     Route: 048
     Dates: start: 20011011, end: 20030916
  2. EZETIMIBE (EZETIMIBE) [Suspect]
     Indication: HYPERLIPIDAEMIA
     Dosage: 10 MG (10 MG, 1 IN 1 D), ORAL
     Route: 046
     Dates: start: 20031114
  3. MEPROBAMATE [Concomitant]
  4. CONJUGATED ESTROGENS [Concomitant]
  5. VERAPAMIL HCL [Concomitant]
  6. CHLOROTHIAZIDE [Concomitant]
  7. PREDNISONE [Concomitant]
  8. QUININE SULFATE (QUININE SULFATE) [Concomitant]
  9. POTASSIUM ACETATE [Concomitant]
  10. ASCRIPTIN (ACETYLSALICYLIC ACID, ALUMINUM HYDROXIDE, MAGNESIUM HYDROXY [Concomitant]
  11. PRAVASTATIN SODIUM [Concomitant]

REACTIONS (44)
  - ANXIETY [None]
  - ARRHYTHMIA [None]
  - ARTHRITIS [None]
  - ASTHENIA [None]
  - BACK PAIN [None]
  - BLADDER PAIN [None]
  - CELLULITIS [None]
  - DECREASED APPETITE [None]
  - DEHYDRATION [None]
  - DIZZINESS [None]
  - DRUG INEFFECTIVE [None]
  - DRY MOUTH [None]
  - DYSGEUSIA [None]
  - DYSPNOEA [None]
  - DYSURIA [None]
  - ENTERITIS [None]
  - FEELING JITTERY [None]
  - HAEMORRHOIDAL HAEMORRHAGE [None]
  - HEADACHE [None]
  - HEART RATE INCREASED [None]
  - HEPATITIS [None]
  - HYPERHIDROSIS [None]
  - HYPERLIPIDAEMIA [None]
  - HYPERTENSION [None]
  - INFECTION [None]
  - INFLAMMATION [None]
  - JOINT SWELLING [None]
  - LIVER DISORDER [None]
  - MEDICATION ERROR [None]
  - MUSCLE STRAIN [None]
  - NASAL CONGESTION [None]
  - NIGHT SWEATS [None]
  - OSTEOPENIA [None]
  - PAIN IN EXTREMITY [None]
  - PALPITATIONS [None]
  - PYREXIA [None]
  - SELF-MEDICATION [None]
  - SKIN LACERATION [None]
  - SLEEP DISORDER [None]
  - STRESS [None]
  - TREATMENT NONCOMPLIANCE [None]
  - URINARY TRACT INFECTION [None]
  - VITREOUS FLOATERS [None]
  - WOUND [None]
